FAERS Safety Report 5393747-4 (Version None)
Quarter: 2007Q3

REPORT INFORMATION
  Report Type: 
  Country: None (occurrence: None)
  Receive Date: 20070719
  Receipt Date: 20070719
  Transmission Date: 20080115
  Serious: Yes (Hospitalization)
  Sender: FDA-Public Use
  Company Number: None

PATIENT
  Age: 80 Year
  Sex: Male
  Weight: 59.4 kg

DRUGS (15)
  1. TEGRETOL [Suspect]
  2. GABAPENTIN [Concomitant]
  3. AZITHROMYCIN [Concomitant]
  4. METOPROLOL TARTRATE [Concomitant]
  5. FERROUS SULFATE [Concomitant]
  6. IPRATROPIUM BROMIDE [Concomitant]
  7. ALBUTEROL [Concomitant]
  8. ACETAMINOPHEN [Concomitant]
  9. ACETAMINOPHEN AND OXYCODONE HCL [Concomitant]
  10. TERAZOSIN HCL [Concomitant]
  11. SIMVASTATIN [Concomitant]
  12. DOCUSATE NA [Concomitant]
  13. CLOPIDOGREL BISULFATE [Concomitant]
  14. NITROGLYCERIN [Concomitant]
  15. ISOSORBIDE MONONITRATE [Concomitant]

REACTIONS (1)
  - PANCYTOPENIA [None]
